FAERS Safety Report 14306728 (Version 1)
Quarter: 2017Q4

REPORT INFORMATION
  Report Type: Report from Study
  Country: US (occurrence: US)
  Receive Date: 20171220
  Receipt Date: 20171220
  Transmission Date: 20180321
  Serious: Yes (Hospitalization)
  Sender: FDA-Public Use
  Company Number: US-ROCHE-1993567

PATIENT
  Sex: Female

DRUGS (5)
  1. DOCETAXEL. [Concomitant]
     Active Substance: DOCETAXEL
  2. HERCEPTIN [Suspect]
     Active Substance: TRASTUZUMAB
     Indication: BREAST CANCER
     Route: 065
     Dates: start: 20140924
  3. PERJETA [Suspect]
     Active Substance: PERTUZUMAB
     Indication: BREAST CANCER
     Route: 065
     Dates: start: 20140924
  4. NEUPOGEN [Concomitant]
     Active Substance: FILGRASTIM
  5. CARBOPLATIN. [Concomitant]
     Active Substance: CARBOPLATIN

REACTIONS (2)
  - Urinary tract infection [Unknown]
  - Febrile neutropenia [Unknown]
